FAERS Safety Report 19001761 (Version 2)
Quarter: 2021Q3

REPORT INFORMATION
  Report Type: Spontaneous
  Country: US (occurrence: US)
  Receive Date: 20210312
  Receipt Date: 20210908
  Transmission Date: 20211014
  Serious: No
  Sender: FDA-Public Use
  Company Number: US-FARMAPROD-202012-1674

PATIENT
  Sex: Female

DRUGS (17)
  1. VITAMINE B12 [Concomitant]
     Active Substance: CYANOCOBALAMIN
  2. GABAPENTIN. [Concomitant]
     Active Substance: GABAPENTIN
  3. CALCIUM/VITAMINE D [Concomitant]
     Dosage: 500 MG/ 1000 MG
  4. TIZANIDINE HYDROCHLORIDE. [Concomitant]
     Active Substance: TIZANIDINE HYDROCHLORIDE
  5. OXERVATE [Suspect]
     Active Substance: CENEGERMIN-BKBJ
     Indication: NEUROTROPHIC KERATOPATHY
     Route: 047
     Dates: start: 20201204
  6. BONIVA [Concomitant]
     Active Substance: IBANDRONATE SODIUM
  7. PROBIOTIC 10B CELL [Concomitant]
  8. MORBIC [Concomitant]
  9. SYNTHROID [Concomitant]
     Active Substance: LEVOTHYROXINE SODIUM
  10. BESIVANCE [Concomitant]
     Active Substance: BESIFLOXACIN
     Dosage: DROPS SUSPENSION
  11. CARBIDOPA/LEVODOPA [Concomitant]
     Active Substance: CARBIDOPA\LEVODOPA
  12. MELOXICAM. [Concomitant]
     Active Substance: MELOXICAM
  13. IRON [Concomitant]
     Active Substance: IRON
     Dosage: 159 (45) MG
  14. CLONAZEPAM. [Concomitant]
     Active Substance: CLONAZEPAM
  15. PHENOBARBITAL. [Concomitant]
     Active Substance: PHENOBARBITAL
  16. LOTEMAX [Concomitant]
     Active Substance: LOTEPREDNOL ETABONATE
  17. LORAZEPAM. [Concomitant]
     Active Substance: LORAZEPAM

REACTIONS (2)
  - Therapy interrupted [Unknown]
  - Eye pain [Unknown]
